FAERS Safety Report 18583278 (Version 3)
Quarter: 2020Q4

REPORT INFORMATION
  Report Type: Spontaneous
  Country: FR (occurrence: FR)
  Receive Date: 20201206
  Receipt Date: 20201223
  Transmission Date: 20210114
  Serious: Yes (Hospitalization)
  Sender: FDA-Public Use
  Company Number: FR-JNJFOC-20201209929

PATIENT
  Age: 23 Year
  Sex: Female

DRUGS (1)
  1. SIMPONI [Suspect]
     Active Substance: GOLIMUMAB
     Indication: PRODUCT USED FOR UNKNOWN INDICATION
     Route: 058
     Dates: start: 20200820

REACTIONS (8)
  - Finger deformity [Not Recovered/Not Resolved]
  - Malaise [Unknown]
  - Oedema peripheral [Unknown]
  - Tendon injury [Not Recovered/Not Resolved]
  - Pain [Unknown]
  - Gait disturbance [Unknown]
  - Generalised oedema [Unknown]
  - Adverse event [Unknown]
